FAERS Safety Report 14327468 (Version 6)
Quarter: 2022Q3

REPORT INFORMATION
  Report Type: Spontaneous
  Country: GB (occurrence: GB)
  Receive Date: 20171227
  Receipt Date: 20220706
  Transmission Date: 20221027
  Serious: Yes (Death, Other)
  Sender: FDA-Public Use
  Company Number: GB-EMA-DD-20171215-KSEVHUMANWT-165510

PATIENT

DRUGS (7)
  1. COCODAMOL [Suspect]
     Active Substance: ACETAMINOPHEN\CODEINE PHOSPHATE
     Indication: Analgesic therapy
     Dosage: 28 DF, DAILY [112 TABLET, FOR TWO WEEKS]
     Route: 048
  2. COCODAMOL [Suspect]
     Active Substance: ACETAMINOPHEN\CODEINE PHOSPHATE
     Indication: Pain
  3. ACETAMINOPHEN [Suspect]
     Active Substance: ACETAMINOPHEN
     Indication: Pain
     Dosage: UNK
     Route: 048
     Dates: start: 20161014, end: 20161014
  4. ACETAMINOPHEN [Suspect]
     Active Substance: ACETAMINOPHEN
     Dosage: 28 DOSAGE FORM
     Route: 048
  5. PREGABALIN [Suspect]
     Active Substance: PREGABALIN
     Indication: Product used for unknown indication
     Dosage: 3 DF, TOTAL
     Route: 065
     Dates: start: 20161015, end: 20161015
  6. ZOPICLONE [Suspect]
     Active Substance: ZOPICLONE
     Indication: Sleep disorder
     Dosage: 14 TABLET, FOR TWO WEEKS
     Route: 048
  7. MORPHINE [Suspect]
     Active Substance: MORPHINE
     Indication: Product used for unknown indication
     Dosage: UNK, TOTAL
     Route: 065
     Dates: start: 20161014, end: 20161014

REACTIONS (11)
  - Accidental overdose [Fatal]
  - Drug abuse [Fatal]
  - Vision blurred [Fatal]
  - Dysarthria [Fatal]
  - Toxicity to various agents [Fatal]
  - Gait disturbance [Fatal]
  - Intentional product misuse [Fatal]
  - Prescription drug used without a prescription [Fatal]
  - Eye pain [Fatal]
  - Drug diversion [Fatal]
  - Pneumonia [Fatal]

NARRATIVE: CASE EVENT DATE: 20161001
